FAERS Safety Report 6637249-3 (Version None)
Quarter: 2010Q1

REPORT INFORMATION
  Report Type: 
  Country: None (occurrence: None)
  Receive Date: 20100316
  Receipt Date: 20100218
  Transmission Date: 20100710
  Serious: No
  Sender: FDA-Public Use
  Company Number: US-ABBOTT-10P-163-0628242-00

PATIENT
  Age: 53 Year
  Sex: Female

DRUGS (8)
  1. TRILIPIX [Suspect]
     Indication: BLOOD TRIGLYCERIDES INCREASED
     Dates: end: 20100114
  2. TRILIPIX [Suspect]
     Indication: HIGH DENSITY LIPOPROTEIN DECREASED
     Dates: end: 20100114
  3. TRILIPIX [Suspect]
     Indication: BLOOD CHOLESTEROL INCREASED
  4. COQ10 [Concomitant]
     Indication: DRUG USE FOR UNKNOWN INDICATION
  5. CRESTOR [Concomitant]
     Indication: DRUG USE FOR UNKNOWN INDICATION
  6. ZETIA [Concomitant]
     Indication: DRUG USE FOR UNKNOWN INDICATION
  7. AMARYL [Concomitant]
     Indication: DRUG USE FOR UNKNOWN INDICATION
  8. AVANDIA/METFORMIN [Concomitant]
     Indication: DRUG USE FOR UNKNOWN INDICATION

REACTIONS (1)
  - RASH [None]
